FAERS Safety Report 25852443 (Version 1)
Quarter: 2025Q3

REPORT INFORMATION
  Report Type: Spontaneous
  Country: KG (occurrence: KG)
  Receive Date: 20250926
  Receipt Date: 20250926
  Transmission Date: 20251021
  Serious: Yes (Death)
  Sender: NOVARTIS
  Company Number: KG-002147023-NVSC2025KG149672

PATIENT
  Age: 14 Year
  Sex: Male

DRUGS (1)
  1. TASIGNA [Suspect]
     Active Substance: NILOTINIB
     Indication: Chronic myeloid leukaemia
     Dosage: 200 MG, QD (1 X 200MG TABLET)
     Route: 065

REACTIONS (1)
  - Chronic myeloid leukaemia [Fatal]

NARRATIVE: CASE EVENT DATE: 20250923
